FAERS Safety Report 5146107-5 (Version None)
Quarter: 2006Q4

REPORT INFORMATION
  Report Type: 
  Country: None (occurrence: None)
  Receive Date: 20061108
  Receipt Date: 20061011
  Transmission Date: 20070319
  Serious: Yes (Life-Threatening)
  Sender: FDA-Public Use
  Company Number: 2006AP04752

PATIENT
  Age: 29 Year
  Sex: Female
  Weight: 52 kg

DRUGS (3)
  1. MARCAINE [Suspect]
     Indication: SPINAL ANAESTHESIA
     Route: 037
     Dates: start: 20060227, end: 20060227
  2. OXYTOCIN [Concomitant]
  3. TRIXON [Concomitant]
     Indication: INFECTION PROPHYLAXIS

REACTIONS (4)
  - ANAPHYLACTIC SHOCK [None]
  - EYELID OEDEMA [None]
  - RASH [None]
  - RESPIRATORY FAILURE [None]
